FAERS Safety Report 9524652 (Version 2)
Quarter: 2013Q4

REPORT INFORMATION
  Report Type: Spontaneous
  Country: US (occurrence: US)
  Receive Date: 20130916
  Receipt Date: 20131001
  Transmission Date: 20140711
  Serious: Yes (Other)
  Sender: FDA-Public Use
  Company Number: US-PFIZER INC-2013262870

PATIENT
  Age: 59 Year
  Sex: Female
  Weight: 165 kg

DRUGS (9)
  1. LYRICA [Suspect]
     Dosage: 150 MG, 2X/DAY
     Route: 048
  2. SPIRONOLACTONE [Concomitant]
     Indication: HYPERTENSION
     Dosage: 12.5 MG, 2X/DAY
  3. BYSTOLIC [Concomitant]
     Indication: HYPERTENSION
     Dosage: 5 MG, 1X/DAY
  4. NEXIUM [Concomitant]
     Dosage: 40 MG, 2X/DAY
  5. HYDROCODONE W/ACETAMINOPHEN [Concomitant]
     Dosage: (HYDROCODONE 7.5 MG/ACETAMINOPHEN 500 MG), AS NEEDED
  6. TIZANIDINE [Concomitant]
     Dosage: 2 MG, AS NEEDED
  7. NORTRIPTYLINE [Concomitant]
     Dosage: 25 MG, 1X/DAY
  8. CETIRIZINE [Concomitant]
     Dosage: UNK
  9. DOCUSATE [Concomitant]
     Indication: FAECES HARD
     Dosage: UNK

REACTIONS (2)
  - Breast cancer [Recovered/Resolved]
  - Amnesia [Unknown]
